FAERS Safety Report 6336737-7 (Version None)
Quarter: 2009Q3

REPORT INFORMATION
  Report Type: 
  Country: None (occurrence: None)
  Receive Date: 20090901
  Receipt Date: 20090823
  Transmission Date: 20100115
  Serious: Yes (Hospitalization, Other)
  Sender: FDA-Public Use
  Company Number: US-PFIZER INC-2009219500

PATIENT

DRUGS (1)
  1. SUTENT [Suspect]
     Indication: RENAL CELL CARCINOMA
     Dosage: 50 MG, 1X/DAY
     Route: 048
     Dates: start: 20081128

REACTIONS (5)
  - ASTHENIA [None]
  - DIARRHOEA [None]
  - JAUNDICE [None]
  - RECTAL HAEMORRHAGE [None]
  - VOMITING [None]
